FAERS Safety Report 9840050 (Version 3)
Quarter: 2014Q2

REPORT INFORMATION
  Report Type: Spontaneous
  Country: US (occurrence: US)
  Receive Date: 20140124
  Receipt Date: 20140412
  Transmission Date: 20141212
  Serious: No
  Sender: FDA-Public Use
  Company Number: US-009507513-1401USA010801

PATIENT
  Age: 22 Year
  Sex: Female

DRUGS (1)
  1. NEXPLANON [Suspect]
     Indication: CONTRACEPTION
     Dosage: LEFT ARM
     Route: 059
     Dates: start: 20131001, end: 20140117

REACTIONS (7)
  - Device dislocation [Recovered/Resolved]
  - Device kink [Recovered/Resolved]
  - General anaesthesia [Recovered/Resolved]
  - Device difficult to use [Recovered/Resolved]
  - Vaginal haemorrhage [Unknown]
  - Implant site fibrosis [Recovered/Resolved]
  - Encapsulation reaction [Recovered/Resolved]
